FAERS Safety Report 11081672 (Version 3)
Quarter: 2017Q1

REPORT INFORMATION
  Report Type: Spontaneous
  Country: US (occurrence: US)
  Receive Date: 20150501
  Receipt Date: 20170207
  Transmission Date: 20170428
  Serious: Yes (Other)
  Sender: FDA-Public Use
  Company Number: US-ASTELLAS-2015US014089

PATIENT
  Age: 61 Year
  Sex: Male

DRUGS (1)
  1. XTANDI [Suspect]
     Active Substance: ENZALUTAMIDE
     Indication: PROSTATE CANCER
     Dosage: 4 DF (CAPSULES), ONCE DAILY
     Route: 065
     Dates: start: 20150303

REACTIONS (3)
  - Rash macular [Recovered/Resolved]
  - Paraesthesia [Recovered/Resolved]
  - Tooth fracture [Recovering/Resolving]

NARRATIVE: CASE EVENT DATE: 20150425
